FAERS Safety Report 8695288 (Version 2)
Quarter: 2012Q4

REPORT INFORMATION
  Report Type: 
  Country: DE (occurrence: DE)
  Receive Date: 20120731
  Receipt Date: 20120907
  Transmission Date: 20130627
  Serious: Yes (Hospitalization)
  Sender: FDA-Public Use
  Company Number: DE-JNJFOC-20120712419

PATIENT
  Sex: Male
  Weight: 70 kg

DRUGS (10)
  1. XARELTO [Suspect]
     Indication: CEREBROVASCULAR ACCIDENT PROPHYLAXIS
     Route: 048
     Dates: end: 20120719
  2. XARELTO [Suspect]
     Indication: ATRIAL FIBRILLATION
     Route: 048
     Dates: end: 20120719
  3. ACETYLSALICYLIC ACID [Concomitant]
  4. CARVEDILOL [Concomitant]
  5. GABAPENTIN [Concomitant]
  6. INEGY [Concomitant]
  7. PANTOZOL [Concomitant]
  8. RAMIPRIL PLUS [Concomitant]
  9. DIGIMERCK [Concomitant]
  10. APONAL [Concomitant]

REACTIONS (4)
  - Abdominal pain upper [Recovered/Resolved]
  - Nausea [Recovered/Resolved]
  - Lipase increased [Recovered/Resolved]
  - Amylase increased [Recovered/Resolved]
